FAERS Safety Report 8217236 (Version 5)
Quarter: 2013Q1

REPORT INFORMATION
  Report Type: Report from Study
  Country: JP (occurrence: JP)
  Receive Date: 20111101
  Receipt Date: 20130212
  Transmission Date: 20140127
  Serious: Yes (Hospitalization, Other)
  Sender: FDA-Public Use
  Company Number: PHHY2011JP93791

PATIENT
  Age: 59 Year
  Sex: Female
  Weight: 59 kg

DRUGS (16)
  1. LEPONEX / CLOZARIL [Suspect]
     Indication: SCHIZOPHRENIA
     Dosage: UNK UKN, UNK
     Dates: start: 20111006, end: 20111006
  2. LEPONEX / CLOZARIL [Suspect]
     Dosage: 12.5 MG, UNK
     Route: 048
     Dates: start: 20111006, end: 20111006
  3. LEPONEX / CLOZARIL [Suspect]
     Dosage: 25 MG, UNK
     Route: 048
     Dates: start: 20111007, end: 20111009
  4. LEPONEX / CLOZARIL [Suspect]
     Dosage: 50 MG, UNK
     Route: 048
     Dates: start: 20111010, end: 20111012
  5. LEPONEX / CLOZARIL [Suspect]
     Dosage: 75 MG, UNK
     Route: 048
     Dates: start: 20111013, end: 20111016
  6. LEPONEX / CLOZARIL [Suspect]
     Dosage: 100 MG, UNK
     Route: 048
     Dates: start: 20111017, end: 20111019
  7. LEPONEX / CLOZARIL [Suspect]
     Dosage: 125 MG, UNK
     Route: 048
     Dates: start: 20111020, end: 20111020
  8. RIVOTRIL [Concomitant]
     Indication: SCHIZOPHRENIA, PARANOID TYPE
     Dosage: 4 MG, UNK
     Route: 048
     Dates: start: 20110428, end: 20111019
  9. BIPERIDEN HYDROCHLORIDE [Concomitant]
     Dosage: 3 MG, UNK
     Route: 048
  10. FLUNITRAZEPAM [Concomitant]
     Indication: SCHIZOPHRENIA, PARANOID TYPE
     Dosage: 2 MG, UNK
     Route: 048
  11. DEPAKENE [Concomitant]
     Indication: SCHIZOPHRENIA, PARANOID TYPE
     Dosage: 800 MG, UNK
     Route: 048
     Dates: start: 20110526, end: 20111019
  12. NORADRENALINE [Concomitant]
     Dosage: UNK UKN, UNK
  13. ROCEPHIN [Concomitant]
     Dosage: UNK UKN, UNK
  14. MEROPEN [Concomitant]
     Dosage: UNK UKN, UNK
  15. METRONIDAZOLE [Concomitant]
     Dosage: UNK UKN, UNK
  16. VANCOMYCIN [Concomitant]
     Dosage: 500 MG, UNK

REACTIONS (14)
  - Renal failure acute [Recovered/Resolved]
  - Shock [Recovered/Resolved]
  - Infection [Unknown]
  - Blood pressure diastolic decreased [Unknown]
  - Clostridium difficile colitis [Recovered/Resolved]
  - Disseminated intravascular coagulation [Unknown]
  - Pyrexia [Recovered/Resolved]
  - Platelet count decreased [Recovered/Resolved]
  - Blood creatine phosphokinase increased [Recovered/Resolved]
  - Hypotension [Recovered/Resolved]
  - Clostridium difficile infection [Recovered/Resolved]
  - Neutrophil count increased [Unknown]
  - Vomiting [Unknown]
  - White blood cell count increased [Unknown]
